FAERS Safety Report 5726244-4 (Version None)
Quarter: 2008Q2

REPORT INFORMATION
  Report Type: 
  Country: None (occurrence: None)
  Receive Date: 20080502
  Receipt Date: 20080423
  Transmission Date: 20081010
  Serious: Yes (Hospitalization)
  Sender: FDA-Public Use
  Company Number: GB-JNJFOC-20071006262

PATIENT
  Sex: Female
  Weight: 56 kg

DRUGS (6)
  1. INFLIXIMAB* [Suspect]
     Route: 042
  2. INFLIXIMAB* [Suspect]
     Indication: CROHN'S DISEASE
     Route: 042
  3. METRANIDAZOLE [Concomitant]
     Indication: CROHN'S DISEASE
  4. ADALIMUMAB [Concomitant]
     Indication: CROHN'S DISEASE
     Dosage: FREQUENCY: EVERY OTHER WEEK
  5. LAMOTRIGINE [Concomitant]
     Indication: EPILEPSY
     Dosage: RECEIVED FOR YEARS
  6. VALPROATE SODIUM [Concomitant]
     Indication: EPILEPSY
     Dosage: RECEIVED FOR YEARS

REACTIONS (1)
  - CROHN'S DISEASE [None]
